FAERS Safety Report 11424208 (Version 2)
Quarter: 2015Q3

REPORT INFORMATION
  Report Type: Spontaneous
  Country: US (occurrence: US)
  Receive Date: 20150827
  Receipt Date: 20150925
  Transmission Date: 20151125
  Serious: No
  Sender: FDA-Public Use
  Company Number: US-GLAXOSMITHKLINE-US2015121387

PATIENT
  Age: 68 Year
  Sex: Male

DRUGS (11)
  1. LASIX [Concomitant]
     Active Substance: FUROSEMIDE
  2. COREG [Concomitant]
     Active Substance: CARVEDILOL
  3. FLOMAX (NOS) [Concomitant]
  4. GEMFIBROZIL. [Concomitant]
     Active Substance: GEMFIBROZIL
  5. METFORMIN [Concomitant]
     Active Substance: METFORMIN HYDROCHLORIDE
  6. NOVOLOG [Concomitant]
     Active Substance: INSULIN ASPART
  7. LOVAZA [Suspect]
     Active Substance: OMEGA-3-ACID ETHYL ESTERS
     Indication: PRODUCT USED FOR UNKNOWN INDICATION
     Dosage: 2 G, 1D
     Route: 048
     Dates: start: 201508
  8. PRILOSEC [Suspect]
     Active Substance: OMEPRAZOLE MAGNESIUM
     Indication: GASTROOESOPHAGEAL REFLUX DISEASE
     Dosage: 40 MG, BID
     Route: 048
  9. CRESTOR [Concomitant]
     Active Substance: ROSUVASTATIN CALCIUM
  10. LANTUS [Concomitant]
     Active Substance: INSULIN GLARGINE
  11. INVOKANA [Concomitant]
     Active Substance: CANAGLIFLOZIN

REACTIONS (3)
  - Diarrhoea [Not Recovered/Not Resolved]
  - Medication residue present [Not Recovered/Not Resolved]
  - Product quality issue [Unknown]

NARRATIVE: CASE EVENT DATE: 201508
